FAERS Safety Report 8227093-8 (Version None)
Quarter: 2012Q1

REPORT INFORMATION
  Report Type: 
  Country: None (occurrence: None)
  Receive Date: 20120322
  Receipt Date: 20120314
  Transmission Date: 20120608
  Serious: Yes (Other)
  Sender: FDA-Public Use
  Company Number: CA-JNJFOC-20120200884

PATIENT
  Sex: Female
  Weight: 60.5 kg

DRUGS (10)
  1. REMICADE [Suspect]
     Route: 042
     Dates: start: 20080101
  2. CALCIUM CARBONATE [Concomitant]
     Route: 065
  3. REMICADE [Suspect]
     Indication: COLITIS ULCERATIVE
     Route: 042
     Dates: start: 20120124
  4. REMICADE [Suspect]
     Route: 042
     Dates: start: 20090409
  5. ASACOL [Concomitant]
     Route: 065
  6. REMICADE [Suspect]
     Route: 042
     Dates: start: 20090409
  7. REMICADE [Suspect]
     Indication: RHEUMATOID ARTHRITIS
     Route: 042
     Dates: start: 20120124
  8. CRESTOR [Concomitant]
     Route: 065
  9. REMICADE [Suspect]
     Route: 042
     Dates: start: 20080101
  10. VITAMIN D [Concomitant]
     Route: 065

REACTIONS (3)
  - VAGINAL HAEMORRHAGE [None]
  - VULVOVAGINAL DISCOMFORT [None]
  - INFUSION RELATED REACTION [None]
